FAERS Safety Report 9146178 (Version 1)
Quarter: 2013Q1

REPORT INFORMATION
  Report Type: Spontaneous
  Country: US (occurrence: US)
  Receive Date: 20130307
  Receipt Date: 20130307
  Transmission Date: 20140127
  Serious: Yes (Hospitalization, Disabling, Other)
  Sender: FDA-Public Use
  Company Number: PHEH2013US002828

PATIENT
  Age: 74 Year
  Sex: Female
  Weight: 54.43 kg

DRUGS (6)
  1. AFINITOR [Suspect]
     Indication: BREAST CANCER METASTATIC
     Dosage: 10 MG, QD
     Route: 048
     Dates: start: 201210, end: 20130123
  2. EXEMESTANE [Concomitant]
     Indication: BREAST CANCER METASTATIC
     Dosage: 25 MG, QD
     Dates: start: 201210, end: 20130123
  3. LISINOPRIL [Concomitant]
  4. METOPROLOL [Concomitant]
  5. LAVEX [Concomitant]
  6. LIPITOR [Concomitant]

REACTIONS (13)
  - Pneumonitis [Recovering/Resolving]
  - Dizziness [Recovered/Resolved]
  - Cardiomegaly [Unknown]
  - Pulmonary oedema [Unknown]
  - Ascites [Unknown]
  - Generalised oedema [Unknown]
  - Pleural effusion [Unknown]
  - Dyspnoea [Unknown]
  - Fatigue [Unknown]
  - Breast cancer metastatic [Unknown]
  - Malignant neoplasm progression [Unknown]
  - Metastases to liver [Unknown]
  - Metastases to bone [Unknown]
